FAERS Safety Report 4999869-1 (Version None)
Quarter: 2006Q2

REPORT INFORMATION
  Report Type: 
  Country: None (occurrence: None)
  Receive Date: 20060509
  Receipt Date: 20060428
  Transmission Date: 20061013
  Serious: Yes (Hospitalization)
  Sender: FDA-Public Use
  Company Number: DE-2006-002982

PATIENT
  Age: 35 Year
  Sex: Female
  Weight: 50 kg

DRUGS (1)
  1. MIRENA [Suspect]
     Indication: CONTRACEPTION
     Dosage: 20 UG/DAY, CONT, INTRA-UTERINE
     Route: 015
     Dates: start: 20030101, end: 20060113

REACTIONS (6)
  - CERVIX CARCINOMA [None]
  - CERVIX CARCINOMA STAGE 0 [None]
  - FOCAL NODULAR HYPERPLASIA [None]
  - LYMPHANGIOSIS CARCINOMATOSA [None]
  - LYMPHOCELE [None]
  - METASTASES TO FALLOPIAN TUBE [None]
